FAERS Safety Report 9882251 (Version 2)
Quarter: 2014Q1

REPORT INFORMATION
  Report Type: Spontaneous
  Country: US (occurrence: US)
  Receive Date: 20140207
  Receipt Date: 20140207
  Transmission Date: 20141002
  Serious: Yes (Hospitalization)
  Sender: FDA-Public Use
  Company Number: US-B.I. PHARMACEUTICALS,INC./RIDGEFIELD-2013-BI-33039BP

PATIENT
  Age: 70 Year
  Sex: Male
  Weight: 124.74 kg

DRUGS (13)
  1. PRADAXA [Suspect]
     Indication: ATRIAL FIBRILLATION
     Dosage: 300 MG
     Route: 048
     Dates: start: 201108, end: 20111219
  2. BENEFIBER [Concomitant]
     Route: 048
  3. DEPAKOTE ER [Concomitant]
     Dosage: 250 MG
     Route: 048
  4. FISH OIL [Concomitant]
  5. FLOMAX [Concomitant]
     Dosage: 0.4 MG
  6. LOTREL [Concomitant]
     Route: 048
  7. PLAVIX [Concomitant]
     Dosage: 75 MG
     Route: 048
  8. PRAVASTATIN SODIUM [Concomitant]
     Dosage: 80 MG
     Route: 048
  9. PREVACID [Concomitant]
     Dosage: 30 MG
     Route: 048
  10. TESTOSTERONE [Concomitant]
  11. TRAZADONE HYDROCHLORIDE [Concomitant]
     Dosage: 300 MG
     Route: 048
  12. TRICOR [Concomitant]
     Route: 048
  13. VITAMIN D [Concomitant]

REACTIONS (2)
  - Gastrointestinal haemorrhage [Unknown]
  - Haemorrhoidal haemorrhage [Unknown]
